FAERS Safety Report 5844203-8 (Version None)
Quarter: 2008Q3

REPORT INFORMATION
  Report Type: 
  Country: None (occurrence: None)
  Receive Date: 20080731
  Receipt Date: 20080429
  Transmission Date: 20090109
  Serious: No
  Sender: FDA-Public Use
  Company Number: US200804007508

PATIENT
  Age: 60 Year
  Sex: Female
  Weight: 67.6 kg

DRUGS (5)
  1. BYETTA [Suspect]
     Indication: TYPE 2 DIABETES MELLITUS
     Dosage: 5 UG, 2/D, SUBCUTANEOUS ; 10 UG, 2/D, SUBCUTANEOUS ; 10 UG, 2/D, SUBCUTANEOUS
     Route: 058
     Dates: start: 20070101, end: 20070101
  2. BYETTA [Suspect]
     Indication: TYPE 2 DIABETES MELLITUS
     Dosage: 5 UG, 2/D, SUBCUTANEOUS ; 10 UG, 2/D, SUBCUTANEOUS ; 10 UG, 2/D, SUBCUTANEOUS
     Route: 058
     Dates: start: 20070101, end: 20070101
  3. BYETTA [Suspect]
     Indication: TYPE 2 DIABETES MELLITUS
     Dosage: 5 UG, 2/D, SUBCUTANEOUS ; 10 UG, 2/D, SUBCUTANEOUS ; 10 UG, 2/D, SUBCUTANEOUS
     Route: 058
     Dates: start: 20080101
  4. METFORMIN HCL [Concomitant]
  5. EXENATIDE PEN, DISPOSABLE DEVICE (EXENATIDE PEN)) PEN,DISPOSABLE [Concomitant]

REACTIONS (7)
  - ABDOMINAL DISTENSION [None]
  - ASTHENIA [None]
  - BLOOD GLUCOSE INCREASED [None]
  - DECREASED APPETITE [None]
  - DIARRHOEA [None]
  - MUCOUS STOOLS [None]
  - WEIGHT DECREASED [None]
